FAERS Safety Report 25509445 (Version 1)
Quarter: 2025Q3

REPORT INFORMATION
  Report Type: Report from Study
  Country: JP (occurrence: JP)
  Receive Date: 20250703
  Receipt Date: 20250703
  Transmission Date: 20251020
  Serious: Yes (Death, Other)
  Sender: NOVARTIS
  Company Number: JP-002147023-NVSJ2022JP001025

PATIENT
  Age: 66 Year
  Sex: Male
  Weight: 54 kg

DRUGS (10)
  1. KYMRIAH [Suspect]
     Active Substance: TISAGENLECLEUCEL
     Indication: Diffuse large B-cell lymphoma
     Route: 041
     Dates: start: 20201201, end: 20201201
  2. CYCLOPHOSPHAMIDE [Concomitant]
     Active Substance: CYCLOPHOSPHAMIDE
     Indication: Lymphodepletion
     Route: 065
     Dates: start: 20201126
  3. FLUDARABINE [Concomitant]
     Active Substance: FLUDARABINE PHOSPHATE
     Indication: Lymphodepletion
     Route: 065
     Dates: start: 20201126
  4. BENDAMUSTINE HYDROCHLORIDE [Concomitant]
     Active Substance: BENDAMUSTINE HYDROCHLORIDE
     Indication: Lymphodepletion
     Route: 065
     Dates: start: 20220729, end: 20220921
  5. CORTICORELIN [Concomitant]
     Active Substance: CORTICORELIN
     Indication: Lymphodepletion
     Route: 065
     Dates: start: 20220729, end: 20220921
  6. CYTARABINE [Concomitant]
     Active Substance: CYTARABINE
     Indication: Lymphodepletion
     Route: 065
     Dates: start: 20220729, end: 20220921
  7. RITUXAN [Concomitant]
     Active Substance: RITUXIMAB
     Indication: Lymphodepletion
     Route: 065
     Dates: start: 20220729, end: 20220921
  8. POLATUZUMAB VEDOTIN [Concomitant]
     Active Substance: POLATUZUMAB VEDOTIN
     Indication: Lymphodepletion
     Route: 065
  9. TIRABRUTINIB [Concomitant]
     Active Substance: TIRABRUTINIB
     Indication: Lymphodepletion
     Route: 065
  10. METHOTREXATE [Concomitant]
     Active Substance: METHOTREXATE
     Indication: Lymphodepletion
     Route: 065
     Dates: start: 20220729, end: 20220921

REACTIONS (4)
  - Diffuse large B-cell lymphoma [Fatal]
  - Malignant neoplasm progression [Fatal]
  - Hypogammaglobulinaemia [Recovered/Resolved]
  - Upper respiratory tract infection bacterial [Unknown]

NARRATIVE: CASE EVENT DATE: 20201214
